FAERS Safety Report 24955096 (Version 1)
Quarter: 2025Q1

REPORT INFORMATION
  Report Type: Spontaneous
  Country: ES (occurrence: ES)
  Receive Date: 20250211
  Receipt Date: 20250211
  Transmission Date: 20250409
  Serious: Yes (Hospitalization, Other)
  Sender: CHEPLAPHARM
  Company Number: None

PATIENT
  Age: 76 Year
  Sex: Male

DRUGS (3)
  1. CAPECITABINE [Suspect]
     Active Substance: CAPECITABINE
     Indication: Cholangiocarcinoma
     Dosage: DAILY DOSE: 3000 MILLIGRAM
     Route: 048
     Dates: start: 20250103, end: 20250110
  2. CARVEDILOL [Concomitant]
     Active Substance: CARVEDILOL
     Indication: Cirrhosis alcoholic
  3. GEMCITABINE [Concomitant]
     Active Substance: GEMCITABINE
     Indication: Drug intolerance

REACTIONS (5)
  - Obstruction gastric [Recovered/Resolved]
  - Hyperbilirubinaemia [Unknown]
  - Neutrophilia [Unknown]
  - C-reactive protein increased [Unknown]
  - Off label use [Unknown]

NARRATIVE: CASE EVENT DATE: 20250110
